FAERS Safety Report 12633041 (Version 1)
Quarter: 2016Q3

REPORT INFORMATION
  Report Type: Spontaneous
  Country: US (occurrence: None)
  Receive Date: 20160808
  Receipt Date: 20160808
  Transmission Date: 20161109
  Serious: Yes (Other)
  Sender: FDA-Public Use
  Company Number: None

PATIENT
  Age: 71 Year
  Sex: Female

DRUGS (9)
  1. PRAVASTATIN. [Concomitant]
     Active Substance: PRAVASTATIN
  2. MAGNESIUM [Concomitant]
     Active Substance: MAGNESIUM
  3. FISH OIL [Concomitant]
     Active Substance: FISH OIL
  4. ALEVE [Concomitant]
     Active Substance: NAPROXEN SODIUM
  5. VALACYCLOVIR [Suspect]
     Active Substance: VALACYCLOVIR HYDROCHLORIDE
     Indication: HERPES ZOSTER
     Route: 048
     Dates: start: 20160729, end: 20160731
  6. LOSARTAN. [Concomitant]
     Active Substance: LOSARTAN
  7. SENIOR MULTIVITAMIN [Concomitant]
  8. VALACYCLOVIR [Suspect]
     Active Substance: VALACYCLOVIR HYDROCHLORIDE
     Indication: RASH
     Route: 048
     Dates: start: 20160729, end: 20160731
  9. VITAMIN D3 [Concomitant]
     Active Substance: CHOLECALCIFEROL

REACTIONS (3)
  - Inappropriate schedule of drug administration [None]
  - Incorrect dose administered [None]
  - Epistaxis [None]

NARRATIVE: CASE EVENT DATE: 20160731
